FAERS Safety Report 6339977-6 (Version None)
Quarter: 2009Q3

REPORT INFORMATION
  Report Type: 
  Country: None (occurrence: None)
  Receive Date: 20090903
  Receipt Date: 20090824
  Transmission Date: 20100115
  Serious: Yes (Other)
  Sender: FDA-Public Use
  Company Number: US-BAXTER-2009BH001341

PATIENT
  Age: 44 Year
  Sex: Male
  Weight: 108 kg

DRUGS (5)
  1. HEPARIN SODIUM INJECTION [Suspect]
     Indication: ATRIAL FIBRILLATION
     Route: 042
     Dates: start: 20070613, end: 20070614
  2. METHADONE [Concomitant]
     Indication: DRUG USE FOR UNKNOWN INDICATION
     Route: 065
  3. SOMA [Concomitant]
     Indication: DRUG USE FOR UNKNOWN INDICATION
     Route: 065
  4. XANAX [Concomitant]
     Indication: DRUG USE FOR UNKNOWN INDICATION
     Route: 065
  5. PREGABALIN [Concomitant]
     Indication: DRUG USE FOR UNKNOWN INDICATION
     Route: 065

REACTIONS (24)
  - ABDOMINAL PAIN [None]
  - ABDOMINAL PAIN UPPER [None]
  - ANAEMIA [None]
  - ASTHENIA [None]
  - BURNING SENSATION [None]
  - CHEST PAIN [None]
  - CHOLELITHIASIS [None]
  - DIZZINESS [None]
  - DYSPNOEA [None]
  - FLUSHING [None]
  - GALLBLADDER DISORDER [None]
  - HEADACHE [None]
  - HYPERHIDROSIS [None]
  - HYPOTENSION [None]
  - NAUSEA [None]
  - OEDEMA PERIPHERAL [None]
  - ORGAN FAILURE [None]
  - PARAESTHESIA [None]
  - PHARYNGEAL OEDEMA [None]
  - RASH [None]
  - THIRST [None]
  - VISION BLURRED [None]
  - VOMITING [None]
  - WEIGHT DECREASED [None]
